FAERS Safety Report 9308831 (Version 1)
Quarter: 2013Q2

REPORT INFORMATION
  Report Type: Spontaneous
  Country: US (occurrence: US)
  Receive Date: 20130524
  Receipt Date: 20130524
  Transmission Date: 20140414
  Serious: No
  Sender: FDA-Public Use
  Company Number: US-009507513-1305USA012448

PATIENT
  Age: 25 Year
  Sex: Female

DRUGS (2)
  1. NUVARING [Suspect]
     Indication: CONTRACEPTION
     Dosage: UNK
     Dates: start: 201208
  2. ANTIMICROBIAL (UNSPECIFIED) [Concomitant]
     Indication: SINUSITIS

REACTIONS (1)
  - Unintended pregnancy [Unknown]
